FAERS Safety Report 7599243-8 (Version None)
Quarter: 2011Q3

REPORT INFORMATION
  Report Type: 
  Country: None (occurrence: None)
  Receive Date: 20110711
  Receipt Date: 20110208
  Transmission Date: 20111222
  Serious: Yes (Other)
  Sender: FDA-Public Use
  Company Number: DE-BAYER-2011-013671

PATIENT
  Age: 28 Year
  Sex: Female
  Weight: 64 kg

DRUGS (1)
  1. ESTRADIOL VALERATE/DIENOGEST [Suspect]
     Indication: CONTRACEPTION
     Dosage: UNK
     Route: 048
     Dates: start: 20110118, end: 20110207

REACTIONS (3)
  - PERFORMANCE STATUS DECREASED [None]
  - LYMPHADENOPATHY [None]
  - NIGHT SWEATS [None]
